FAERS Safety Report 23809376 (Version 4)
Quarter: 2025Q3

REPORT INFORMATION
  Report Type: Spontaneous
  Country: US (occurrence: US)
  Receive Date: 20240502
  Receipt Date: 20250804
  Transmission Date: 20251021
  Serious: Yes (Other)
  Sender: TEVA
  Company Number: US-TEVA-VS-3191509

PATIENT
  Age: 18 Year
  Sex: Male

DRUGS (4)
  1. ARIPIPRAZOLE [Suspect]
     Active Substance: ARIPIPRAZOLE
     Indication: Schizophrenia
     Route: 065
  2. NALTREXONE [Suspect]
     Active Substance: NALTREXONE
     Indication: Schizophrenia
     Route: 065
  3. RISPERIDONE [Suspect]
     Active Substance: RISPERIDONE
     Indication: Schizophrenia
     Route: 065
  4. OLANZAPINE\SAMIDORPHAN [Suspect]
     Active Substance: OLANZAPINE\SAMIDORPHAN
     Indication: Schizophrenia
     Route: 065

REACTIONS (3)
  - Drug ineffective [Unknown]
  - Nausea [Unknown]
  - Weight increased [Recovering/Resolving]
